FAERS Safety Report 6317502-3 (Version None)
Quarter: 2009Q3

REPORT INFORMATION
  Report Type: 
  Country: None (occurrence: None)
  Receive Date: 20090821
  Receipt Date: 20090814
  Transmission Date: 20100115
  Serious: Yes (Hospitalization)
  Sender: FDA-Public Use
  Company Number: US-JNJFOC-20090805131

PATIENT
  Sex: Male
  Weight: 58.97 kg

DRUGS (5)
  1. DURAGESIC-100 [Suspect]
     Indication: PAIN
     Dosage: 2 PATCHES OF 75UG/HR
     Route: 062
  2. FENTANYL TRANSDERMAL SYSTEM [Suspect]
     Indication: PAIN
     Dosage: 2 PATCHES OF 75UG/HR
     Route: 062
  3. FENTANYL TRANSDERMAL SYSTEM [Suspect]
     Indication: PAIN
     Route: 062
  4. PHENERGAN [Concomitant]
     Indication: NAUSEA
     Route: 048
  5. DILAUDID [Concomitant]
     Indication: BREAKTHROUGH PAIN
     Route: 060

REACTIONS (16)
  - ATROPHY [None]
  - CENTRAL LINE INFECTION [None]
  - COMA [None]
  - DYSURIA [None]
  - FALL [None]
  - GASTROENTERITIS [None]
  - HOSPITALISATION [None]
  - INAPPROPRIATE SCHEDULE OF DRUG ADMINISTRATION [None]
  - MONOPLEGIA [None]
  - NAUSEA [None]
  - NERVE INJURY [None]
  - PHLEBITIS [None]
  - RENAL FAILURE [None]
  - THROMBOSIS [None]
  - TREMOR [None]
  - VOMITING [None]
